FAERS Safety Report 9346459 (Version 2)
Quarter: 2013Q3

REPORT INFORMATION
  Report Type: Spontaneous
  Country: US (occurrence: US)
  Receive Date: 20130613
  Receipt Date: 20130705
  Transmission Date: 20140515
  Serious: Yes (Hospitalization)
  Sender: FDA-Public Use
  Company Number: US-PFIZER INC-2013174197

PATIENT
  Age: 59 Year
  Sex: Female

DRUGS (1)
  1. SUTENT [Suspect]
     Dosage: 50 MG, 1X/DAY; 4 WEEKS ON/ 2 WEEKS OFF
     Route: 048
     Dates: start: 20120713, end: 201306

REACTIONS (1)
  - Cardiac failure congestive [Unknown]
